FAERS Safety Report 4876898-X (Version None)
Quarter: 2006Q1

REPORT INFORMATION
  Report Type: 
  Country: None (occurrence: None)
  Receive Date: 20060109
  Receipt Date: 20060109
  Transmission Date: 20060701
  Serious: Yes (Life-Threatening, Hospitalization, Other)
  Sender: FDA-Public Use
  Company Number: None

PATIENT
  Age: 38 Year
  Sex: Female
  Weight: 64.8644 kg

DRUGS (2)
  1. ATIVAN [Suspect]
     Indication: ANXIETY
     Dosage: 1 MG ONCE DAILY PO
     Route: 048
     Dates: start: 20050304, end: 20051208
  2. KLONOPIN [Suspect]
     Indication: DRUG WITHDRAWAL SYNDROME
     Dosage: .50 MG 3 TIMES DAILY PO
     Route: 048
     Dates: start: 20051208, end: 20060131

REACTIONS (8)
  - ANXIETY [None]
  - CONDITION AGGRAVATED [None]
  - DEPRESSION [None]
  - DRUG DEPENDENCE [None]
  - DRUG WITHDRAWAL SYNDROME [None]
  - IMPAIRED WORK ABILITY [None]
  - INAPPROPRIATE SCHEDULE OF DRUG ADMINISTRATION [None]
  - SUICIDAL IDEATION [None]
